FAERS Safety Report 12791251 (Version 1)
Quarter: 2016Q3

REPORT INFORMATION
  Report Type: Spontaneous
  Country: US (occurrence: US)
  Receive Date: 20160929
  Receipt Date: 20160929
  Transmission Date: 20161109
  Serious: Yes (Other)
  Sender: FDA-Public Use
  Company Number: US-AUROBINDO-AUR-APU-2015-08264

PATIENT

DRUGS (1)
  1. GABAPENTIN 800MG [Suspect]
     Active Substance: GABAPENTIN
     Indication: PRODUCT USED FOR UNKNOWN INDICATION
     Dosage: UNK
     Route: 065

REACTIONS (6)
  - Product size issue [Recovered/Resolved]
  - Choking [Recovered/Resolved]
  - Foreign body [Recovered/Resolved]
  - Wrong technique in product usage process [Recovered/Resolved]
  - Somnolence [Not Recovered/Not Resolved]
  - Product shape issue [Recovered/Resolved]
